FAERS Safety Report 9168527 (Version 5)
Quarter: 2015Q1

REPORT INFORMATION
  Report Type: Report from Study
  Country: ES (occurrence: DE)
  Receive Date: 20130318
  Receipt Date: 20150306
  Transmission Date: 20150721
  Serious: Yes (Hospitalization, Other)
  Sender: FDA-Public Use
  Company Number: DE-009507513-2011SP041381

PATIENT
  Age: 44 Year
  Sex: Male
  Weight: 79.2 kg

DRUGS (21)
  1. FORTECORTIN [Suspect]
     Active Substance: DEXAMETHASONE
     Dosage: 40 MG, UNK
     Route: 065
     Dates: start: 20110802, end: 20110802
  2. BENALAPRIL [Concomitant]
     Dosage: 40 MG, QD
     Dates: start: 20110721
  3. TEMODAL [Suspect]
     Active Substance: TEMOZOLOMIDE
     Dosage: 380 MG, DAY 1-DAY 5, EVERY 28 DAYS
     Route: 048
     Dates: start: 20110726
  4. TEMODAL [Suspect]
     Active Substance: TEMOZOLOMIDE
     Dosage: 380 MG, DAY 1-DAY 5, EVERY 28 DAYS
     Route: 001
     Dates: start: 20110726
  5. TEMODAL [Suspect]
     Active Substance: TEMOZOLOMIDE
     Dosage: 380 MG, DAY 1-DAY 5, EVERY 28 DAYS
     Route: 001
     Dates: start: 20110726
  6. FORTECORTIN [Suspect]
     Active Substance: DEXAMETHASONE
     Dosage: 16 MG, UNK
     Route: 065
     Dates: start: 20110824, end: 20110826
  7. FORTECORTIN [Suspect]
     Active Substance: DEXAMETHASONE
     Dosage: 2 MG, UNK
     Route: 065
     Dates: start: 20110911, end: 20110912
  8. FORTECORTIN [Suspect]
     Active Substance: DEXAMETHASONE
     Dosage: 12 MG, UNK
     Route: 065
     Dates: start: 20110827, end: 20110904
  9. TEMODAL [Suspect]
     Active Substance: TEMOZOLOMIDE
     Dosage: 145 MG, DAY 1-DAY 5, EVERY 28 DAYS
     Route: 048
     Dates: start: 20110805
  10. FORTECORTIN [Suspect]
     Active Substance: DEXAMETHASONE
     Dosage: 2 MG, UNK
     Route: 065
     Dates: start: 20110626, end: 20110703
  11. NOVAMINSULFON [Concomitant]
     Active Substance: METAMIZOLE
     Dosage: 40 GTT, PRN (1 IN 1 DAY)
  12. PANTOPRAZOLE [Concomitant]
     Active Substance: PANTOPRAZOLE SODIUM
     Dosage: 40 MG, QD
     Dates: start: 20110727
  13. FORTECORTIN [Suspect]
     Active Substance: DEXAMETHASONE
     Dosage: 4 MG, UNK
     Route: 065
     Dates: start: 20110727, end: 20110728
  14. FORTECORTIN [Suspect]
     Active Substance: DEXAMETHASONE
     Dosage: 2 MG, UNK
     Route: 065
     Dates: start: 20110729, end: 20110729
  15. FORTECORTIN [Suspect]
     Active Substance: DEXAMETHASONE
     Dosage: 24 MG, UNK
     Route: 065
     Dates: start: 20110802, end: 20110823
  16. FORTECORTIN [Suspect]
     Active Substance: DEXAMETHASONE
     Dosage: 6 MG, UNK
     Route: 065
     Dates: start: 20110907, end: 20110908
  17. FORTECORTIN [Suspect]
     Active Substance: DEXAMETHASONE
     Dosage: 4 MG, UNK
     Route: 065
     Dates: start: 20110909, end: 20110910
  18. TEMODAL [Suspect]
     Active Substance: TEMOZOLOMIDE
     Indication: GLIOBLASTOMA MULTIFORME
     Dosage: 145 MG, DAY 1-DAY 5, EVERY 28 DAYS
     Route: 048
     Dates: start: 20110726, end: 20110803
  19. TEMODAL [Suspect]
     Active Substance: TEMOZOLOMIDE
     Dosage: 380 MG, DAY 1-DAY 5, EVERY 28 DAYS
     Route: 001
     Dates: start: 20110726
  20. FORTECORTIN [Suspect]
     Active Substance: DEXAMETHASONE
     Dosage: 8 MG, UNK
     Route: 065
     Dates: start: 20110905, end: 20110906
  21. FORTECORTIN [Suspect]
     Active Substance: DEXAMETHASONE
     Dosage: 8 MG, UNK
     Route: 065
     Dates: start: 20120507, end: 20120507

REACTIONS (5)
  - Blood lactate dehydrogenase increased [Unknown]
  - Pneumonia [Recovered/Resolved]
  - Tumour excision [Unknown]
  - Brain oedema [Recovered/Resolved with Sequelae]
  - Seizure [Recovered/Resolved]

NARRATIVE: CASE EVENT DATE: 20110802
